FAERS Safety Report 7978235-0 (Version None)
Quarter: 2011Q4

REPORT INFORMATION
  Report Type: 
  Country: None (occurrence: None)
  Receive Date: 20111214
  Receipt Date: 20111205
  Transmission Date: 20120403
  Serious: Yes (Hospitalization, Disabling, Other)
  Sender: FDA-Public Use
  Company Number: GB-PFIZER INC-2011216602

PATIENT
  Age: 85 Year
  Sex: Female
  Weight: 48.4 kg

DRUGS (15)
  1. GLUCOSAMINE [Concomitant]
     Indication: ARTHRITIS
     Dosage: 1 DF, TWO TIMES PER DAY
     Route: 048
     Dates: start: 20040101
  2. BISOPROLOL [Concomitant]
     Dosage: 1.25 MG, 1X/DAY
  3. ENOXAPARIN SODIUM [Concomitant]
     Dosage: 40 MG, 1X/DAY
     Route: 058
  4. ACETYLSALICYLIC ACID [Concomitant]
     Indication: CARDIOVASCULAR DISORDER
     Dosage: 75MG, UNK
     Route: 048
     Dates: start: 20040101
  5. FORTISIP [Concomitant]
     Dosage: 1 DF, 3X/DAY
  6. ATENOLOL [Concomitant]
     Indication: HYPERTENSION
     Dosage: 50MG, UNK
     Dates: start: 20040101
  7. COD-LIVER OIL [Concomitant]
     Indication: ARTHRITIS
     Dosage: 1 DF, TWO TIMES PER DAY
     Route: 048
     Dates: start: 20040101
  8. VITAMIN B COMPLEX CAP [Concomitant]
     Dosage: 1 DF, 3X/DAY
  9. FLUCLOXACILLIN [Suspect]
     Indication: BUNION OPERATION
  10. LIPITOR [Interacting]
     Indication: HYPERCHOLESTEROLAEMIA
     Dosage: 20MG, UNK
     Route: 048
     Dates: start: 20040101, end: 20110710
  11. LEVOTHYROXINE [Concomitant]
     Dosage: 50UG, UNK
     Route: 048
     Dates: start: 20040101
  12. PROCHLORPERAZINE MALEATE [Concomitant]
     Dosage: 3 MG, 3X/DAY
  13. FUSIDIC ACID [Interacting]
     Indication: OSTEOMYELITIS
     Dosage: 500 MG, 3X/DAY
     Route: 048
     Dates: start: 20110614, end: 20110710
  14. SOLIFENACIN [Concomitant]
     Dosage: 5 MG, 1X/DAY
  15. LEVOTHYROXINE SODIUM [Concomitant]
     Dosage: 50 UG, UNK

REACTIONS (33)
  - DRUG INTERACTION [None]
  - MUSCULAR WEAKNESS [None]
  - HEAD INJURY [None]
  - MUSCLE ATROPHY [None]
  - HYPOREFLEXIA [None]
  - LETHARGY [None]
  - BUNION [None]
  - GENERALISED OEDEMA [None]
  - MYOPATHY [None]
  - MALNUTRITION [None]
  - URINARY INCONTINENCE [None]
  - ADJUSTMENT DISORDER WITH ANXIETY [None]
  - DEPRESSED MOOD [None]
  - CHONDROCALCINOSIS PYROPHOSPHATE [None]
  - MICTURITION URGENCY [None]
  - MYOSITIS [None]
  - LIMB DISCOMFORT [None]
  - FALL [None]
  - WOUND INFECTION STAPHYLOCOCCAL [None]
  - DECUBITUS ULCER [None]
  - NEPHROTIC SYNDROME [None]
  - JOINT SWELLING [None]
  - URINARY TRACT INFECTION [None]
  - RED BLOOD CELL SEDIMENTATION RATE INCREASED [None]
  - DIARRHOEA [None]
  - BLOOD CREATINE PHOSPHOKINASE INCREASED [None]
  - VITAMIN D DEFICIENCY [None]
  - ARTHRALGIA [None]
  - MALAISE [None]
  - MONOCLONAL GAMMOPATHY [None]
  - PAIN [None]
  - HALLUCINATION [None]
  - CARDIAC MURMUR [None]
